FAERS Safety Report 15413926 (Version 3)
Quarter: 2018Q4

REPORT INFORMATION
  Report Type: Report from Study
  Country: US (occurrence: US)
  Receive Date: 20180921
  Receipt Date: 20181226
  Transmission Date: 20190204
  Serious: Yes (Hospitalization)
  Sender: FDA-Public Use
  Company Number: US-THERATECHNOLOGIES, INC.-TH-2018-00368

PATIENT

DRUGS (18)
  1. FLEXERIL [Concomitant]
     Active Substance: CYCLOBENZAPRINE HYDROCHLORIDE
     Dosage: 10 MG MILLIGRAM(S), UNK
  2. LANTUS [Concomitant]
     Active Substance: INSULIN GLARGINE
     Dosage: 100 IU, UNK
  3. PRADAXA [Concomitant]
     Active Substance: DABIGATRAN ETEXILATE MESYLATE
     Dosage: 150 MG MILLIGRAM(S), UNK
  4. CYMBALTA [Concomitant]
     Active Substance: DULOXETINE HYDROCHLORIDE
     Dosage: 90 MG MILLIGRAM(S), UNK
  5. GLUCOTROL [Concomitant]
     Active Substance: GLIPIZIDE
     Dosage: 5 MG MILLIGRAM(S), UNK
  6. SEROQUEL [Concomitant]
     Active Substance: QUETIAPINE FUMARATE
     Dosage: 50 MG MILLIGRAM(S), UNK
  7. FLONASE [Concomitant]
     Active Substance: FLUTICASONE PROPIONATE
     Dosage: 50 MG MILLIGRAM(S), UNK
  8. METOPROLOL. [Concomitant]
     Active Substance: METOPROLOL
     Dosage: 50 MG MILLIGRAM(S), UNK
  9. ODEFSEY [Concomitant]
     Active Substance: EMTRICITABINE\RILPIVIRINE HYDROCHLORIDE\TENOFOVIR ALAFENAMIDE FUMARATE
     Dosage: UNK
  10. ATIVAN [Concomitant]
     Active Substance: LORAZEPAM
     Dosage: 0.5 MG MILLIGRAM(S), UNK
  11. LOPID [Concomitant]
     Active Substance: GEMFIBROZIL
     Dosage: 60 MG MILLIGRAM(S), UNK
  12. NOVOLIN [Concomitant]
     Active Substance: INSULIN HUMAN
     Dosage: UNK
  13. ZOFRAN [Concomitant]
     Active Substance: ONDANSETRON HYDROCHLORIDE
     Dosage: 4 MG MILLIGRAM(S), UNK
  14. EGRIFTA [Suspect]
     Active Substance: TESAMORELIN
     Indication: LIPODYSTROPHY ACQUIRED
     Dosage: 2 MG MILLIGRAM(S), QD
     Route: 058
     Dates: start: 20180815, end: 20180825
  15. GABAPENTIN. [Concomitant]
     Active Substance: GABAPENTIN
     Dosage: 800 MG MILLIGRAM(S), UNK
  16. CLAFORAN [Concomitant]
     Active Substance: CEFOTAXIME SODIUM
     Dosage: 10 MG MILLIGRAM(S), UNK
  17. LAMISIL [Concomitant]
     Active Substance: TERBINAFINE HYDROCHLORIDE
     Dosage: 250 MG MILLIGRAM(S), UNK
  18. METFORMIN [Concomitant]
     Active Substance: METFORMIN HYDROCHLORIDE
     Dosage: 1000 MG MILLIGRAM(S), UNK

REACTIONS (2)
  - Pneumonia [Not Recovered/Not Resolved]
  - Pancreatitis [Not Recovered/Not Resolved]

NARRATIVE: CASE EVENT DATE: 20180825
